FAERS Safety Report 19449569 (Version 3)
Quarter: 2021Q2

REPORT INFORMATION
  Report Type: Spontaneous
  Country: US (occurrence: US)
  Receive Date: 20210622
  Receipt Date: 20210624
  Transmission Date: 20210717
  Serious: Yes (Other)
  Sender: FDA-Public Use
  Company Number: US-HORIZON THERAPEUTICS-HZN-2021-003265

PATIENT

DRUGS (1)
  1. TEPEZZA [Suspect]
     Active Substance: TEPROTUMUMAB-TRBW
     Indication: PRODUCT USED FOR UNKNOWN INDICATION
     Dosage: 5TH INFUSION
     Route: 065

REACTIONS (6)
  - Contusion [Unknown]
  - Seizure [Unknown]
  - Muscle spasms [Unknown]
  - Memory impairment [Unknown]
  - Nausea [Unknown]
  - Photophobia [Unknown]
